FAERS Safety Report 11467364 (Version 1)
Quarter: 2015Q3

REPORT INFORMATION
  Report Type: Not Available
  Country: FR (occurrence: FR)
  Receive Date: 20150908
  Receipt Date: 20150908
  Transmission Date: 20151125
  Serious: Yes (Life-Threatening)
  Sender: FDA-Public Use
  Company Number: FR-BEH-2015053776

PATIENT
  Age: 77 Year
  Sex: Female

DRUGS (13)
  1. PRIVIGEN [Suspect]
     Active Substance: HUMAN IMMUNOGLOBULIN G
     Indication: HYPOGAMMAGLOBULINAEMIA
     Dosage: ONE INFUSION OF 300 ML AT 100 MG/ML
     Route: 042
     Dates: start: 20150730, end: 20150730
  2. TAZOCILLIN [Concomitant]
     Active Substance: PIPERACILLIN SODIUM\TAZOBACTAM SODIUM
     Indication: PNEUMONIA
     Dates: start: 20150727
  3. BISOCE [Concomitant]
     Active Substance: BISOPROLOL
  4. EUPANTOL [Concomitant]
     Active Substance: PANTOPRAZOLE SODIUM
  5. LASILIX [Concomitant]
     Active Substance: FUROSEMIDE
     Dates: end: 20150727
  6. KARDEGIC [Concomitant]
     Active Substance: ASPIRIN LYSINE
     Dosage: 1 SACHET
  7. LASILIX [Concomitant]
     Active Substance: FUROSEMIDE
     Dates: start: 20150728
  8. ALDACTONE [Concomitant]
     Active Substance: SPIRONOLACTONE
     Dates: end: 20150727
  9. PARACETAMOL [Concomitant]
     Active Substance: ACETAMINOPHEN
  10. GLUCOSE - SODIUM [Concomitant]
     Dosage: 500 ML
     Dates: start: 20150725
  11. ROVAMYCINE [Concomitant]
     Active Substance: SPIRAMYCIN
     Dates: start: 20150725, end: 20150727
  12. AMIKACIN [Concomitant]
     Active Substance: AMIKACIN
     Dates: start: 20150725, end: 20150727
  13. LOVENOX [Concomitant]
     Active Substance: ENOXAPARIN SODIUM

REACTIONS (13)
  - Anaphylactic reaction [Recovered/Resolved]
  - Hypertension [Recovered/Resolved]
  - Nausea [Recovered/Resolved]
  - Hypotension [Recovered/Resolved]
  - Chills [Recovered/Resolved]
  - Pyrexia [Recovered/Resolved]
  - Livedo reticularis [Recovered/Resolved]
  - Vomiting [Recovered/Resolved]
  - Blood pressure decreased [Recovered/Resolved]
  - Hot flush [Recovered/Resolved]
  - Tachycardia [Recovered/Resolved]
  - Blood pressure systolic decreased [Recovered/Resolved]
  - Somnolence [Recovered/Resolved]

NARRATIVE: CASE EVENT DATE: 20150730
